FAERS Safety Report 8246952-3 (Version None)
Quarter: 2012Q1

REPORT INFORMATION
  Report Type: 
  Country: None (occurrence: None)
  Receive Date: 20120327
  Receipt Date: 20120307
  Transmission Date: 20120608
  Serious: Yes (Other)
  Sender: FDA-Public Use
  Company Number: JP-20120015

PATIENT
  Age: 66 Year
  Sex: Male

DRUGS (1)
  1. 10ML (LIPIODOL ULTRA FLUIDE) (ETHIODIZED OIL) [Suspect]
     Indication: HEPATIC EMBOLISATION
     Route: 013

REACTIONS (4)
  - HEPATIC INFARCTION [None]
  - PORTAL VEIN OCCLUSION [None]
  - OFF LABEL USE [None]
  - HEPATIC NECROSIS [None]
